FAERS Safety Report 24635750 (Version 1)
Quarter: 2024Q4

REPORT INFORMATION
  Report Type: Spontaneous
  Country: US (occurrence: US)
  Receive Date: 20241119
  Receipt Date: 20241119
  Transmission Date: 20250115
  Serious: No
  Sender: CATALYST PHARMA
  Company Number: US-CATALYST PHARMACEUTICALS-US-CATA-24-00957

PATIENT
  Sex: Female
  Weight: 19.048 kg

DRUGS (11)
  1. AGAMREE [Suspect]
     Active Substance: VAMOROLONE
     Indication: Duchenne muscular dystrophy
     Dosage: 2.7 ML ONCE A DAY
     Route: 048
     Dates: start: 20240522
  2. VILTEPSO [Concomitant]
     Active Substance: VILTOLARSEN
     Indication: Duchenne muscular dystrophy
     Dosage: WEEKLY IV
     Route: 042
  3. GENERIC TYLENOL [Concomitant]
     Indication: Premedication
     Dosage: 160 MG ONCE A WEEK
     Route: 065
  4. DIPHENHYDRAMINE HYDROCHLORIDE [Concomitant]
     Active Substance: DIPHENHYDRAMINE HYDROCHLORIDE
     Indication: Premedication
     Dosage: 12.5 MG ONCE A WEEK
     Route: 065
  5. VITAMIN D3 [Concomitant]
     Active Substance: CHOLECALCIFEROL
     Indication: Bone disorder
     Dosage: 5 ML ONCE A DAY
     Route: 065
  6. IRON [Concomitant]
     Active Substance: IRON
     Indication: Iron deficiency
     Dosage: 15 MG ONCE A DAY
     Route: 065
  7. VITAMIN C [Concomitant]
     Active Substance: ASCORBIC ACID
     Indication: Hypovitaminosis
     Dosage: HALF A TABLET ONCE A DAY
     Route: 065
  8. CALCIUM [Concomitant]
     Active Substance: CALCIUM
     Indication: Bone disorder
     Dosage: 600 MG ONCE A DAY
     Route: 065
  9. MELATONIN [Concomitant]
     Active Substance: MELATONIN
     Indication: Insomnia
     Dosage: 1 MG AT BEDTIME
     Route: 065
  10. VITAMIN B12 [Concomitant]
     Active Substance: CYANOCOBALAMIN
     Indication: Hypovitaminosis
     Dosage: 500 MCG ONCE A DAY
     Route: 065
  11. LACTULOSE [Concomitant]
     Active Substance: LACTULOSE
     Indication: Constipation
     Dosage: 20 ML 2 X DAY
     Route: 065

REACTIONS (2)
  - Skin bacterial infection [Recovered/Resolved]
  - Tooth abscess [Recovered/Resolved]

NARRATIVE: CASE EVENT DATE: 20240101
